FAERS Safety Report 19302493 (Version 1)
Quarter: 2021Q2

REPORT INFORMATION
  Report Type: Spontaneous
  Country: SG (occurrence: SG)
  Receive Date: 20210525
  Receipt Date: 20210525
  Transmission Date: 20210717
  Serious: Yes (Other)
  Sender: FDA-Public Use
  Company Number: SG-SA-2021SA167809

PATIENT

DRUGS (2)
  1. TRAZODONE HYDROCHLORIDE. [Suspect]
     Active Substance: TRAZODONE HYDROCHLORIDE
     Dosage: TRITTICO FOR 7 MONTHS
  2. STILNOX [Suspect]
     Active Substance: ZOLPIDEM TARTRATE
     Dosage: 1?2 AT BEDTIME) FOR 2 MONTHS

REACTIONS (2)
  - Hypothyroidism [Unknown]
  - Product use issue [Unknown]
